FAERS Safety Report 8429994-4 (Version None)
Quarter: 2012Q2

REPORT INFORMATION
  Report Type: 
  Country: None (occurrence: None)
  Receive Date: 20120612
  Receipt Date: 20120605
  Transmission Date: 20120825
  Serious: Yes (Other)
  Sender: FDA-Public Use
  Company Number: US-B.I. PHARMACEUTICALS,INC./RIDGEFIELD-2012-BP-13101BP

PATIENT
  Age: 73 Year
  Sex: Female

DRUGS (6)
  1. PRADAXA [Suspect]
     Indication: HEART RATE INCREASED
     Dates: start: 20111101
  2. THYROID TAB [Suspect]
     Indication: HYPOTHYROIDISM
     Dosage: 60 MG
     Dates: start: 20090101
  3. THYROID TAB [Suspect]
     Dosage: 120 MG
  4. VITAMIN TAB [Concomitant]
  5. FISH OIL [Concomitant]
  6. THYROID TAB [Suspect]
     Dosage: 90 MG

REACTIONS (9)
  - HEART RATE INCREASED [None]
  - FEELING ABNORMAL [None]
  - DRY SKIN [None]
  - ALOPECIA [None]
  - CONTUSION [None]
  - THINKING ABNORMAL [None]
  - HEART RATE IRREGULAR [None]
  - SLUGGISHNESS [None]
  - BLOOD THYROID STIMULATING HORMONE INCREASED [None]
